FAERS Safety Report 19227408 (Version 10)
Quarter: 2024Q1

REPORT INFORMATION
  Report Type: Spontaneous
  Country: CA (occurrence: CA)
  Receive Date: 20210507
  Receipt Date: 20240201
  Transmission Date: 20240410
  Serious: Yes (Hospitalization, Other)
  Sender: FDA-Public Use
  Company Number: CA-MLMSERVICE-20210421-2849552-1

PATIENT
  Age: 47 Year
  Sex: Female

DRUGS (45)
  1. RISPERDAL [Interacting]
     Active Substance: RISPERIDONE
     Indication: Affective disorder
     Route: 048
  2. RISPERDAL [Interacting]
     Active Substance: RISPERIDONE
     Route: 048
  3. DOXEPIN [Interacting]
     Active Substance: DOXEPIN
     Indication: Major depression
     Route: 048
  4. DOXEPIN [Interacting]
     Active Substance: DOXEPIN
     Route: 048
  5. DOXEPIN [Interacting]
     Active Substance: DOXEPIN
     Route: 048
  6. DIVALPROEX SODIUM [Interacting]
     Active Substance: DIVALPROEX SODIUM
     Indication: Affective disorder
     Dosage: 250 MG IN THE MORNING
     Route: 048
  7. DIVALPROEX SODIUM [Interacting]
     Active Substance: DIVALPROEX SODIUM
     Indication: Mania
     Dosage: 500 MG AT BEDTIME
     Route: 048
  8. DIVALPROEX SODIUM [Interacting]
     Active Substance: DIVALPROEX SODIUM
     Route: 065
  9. CYCLOBENZAPRINE [Interacting]
     Active Substance: CYCLOBENZAPRINE
     Indication: Pain
     Route: 048
  10. CYCLOBENZAPRINE [Interacting]
     Active Substance: CYCLOBENZAPRINE
     Indication: Scoliosis
     Route: 048
  11. CYCLOBENZAPRINE [Interacting]
     Active Substance: CYCLOBENZAPRINE
     Route: 048
  12. METHADONE [Interacting]
     Active Substance: METHADONE HYDROCHLORIDE
     Indication: Drug use disorder
     Route: 048
  13. METHADONE [Interacting]
     Active Substance: METHADONE HYDROCHLORIDE
     Route: 048
  14. METHADONE [Interacting]
     Active Substance: METHADONE HYDROCHLORIDE
     Route: 048
  15. METHADONE [Interacting]
     Active Substance: METHADONE HYDROCHLORIDE
     Route: 048
  16. FLUOXETINE [Interacting]
     Active Substance: FLUOXETINE HYDROCHLORIDE
     Indication: Major depression
     Route: 048
  17. FLUOXETINE [Interacting]
     Active Substance: FLUOXETINE HYDROCHLORIDE
     Route: 048
  18. FLUOXETINE [Interacting]
     Active Substance: FLUOXETINE HYDROCHLORIDE
     Route: 048
  19. FLUOXETINE [Interacting]
     Active Substance: FLUOXETINE HYDROCHLORIDE
     Route: 048
  20. GABAPENTIN [Interacting]
     Active Substance: GABAPENTIN
     Indication: Pain
     Dosage: 1 EVERY 8 HOURS
     Route: 048
  21. GABAPENTIN [Interacting]
     Active Substance: GABAPENTIN
     Indication: Scoliosis
     Route: 065
  22. LORAZEPAM [Interacting]
     Active Substance: LORAZEPAM
     Indication: Withdrawal syndrome
     Dosage: 1 TO 2 MG PO 4 TIMES DAILY AS NEEDED; AS REQUIRED
     Route: 048
  23. LORAZEPAM [Interacting]
     Active Substance: LORAZEPAM
     Indication: Anxiety
     Route: 065
  24. LORAZEPAM [Interacting]
     Active Substance: LORAZEPAM
     Route: 065
  25. LORAZEPAM [Interacting]
     Active Substance: LORAZEPAM
     Route: 048
  26. LORAZEPAM [Interacting]
     Active Substance: LORAZEPAM
     Route: 030
  27. LORAZEPAM [Interacting]
     Active Substance: LORAZEPAM
     Route: 065
  28. LORAZEPAM [Interacting]
     Active Substance: LORAZEPAM
     Route: 065
  29. LORAZEPAM [Interacting]
     Active Substance: LORAZEPAM
     Route: 065
  30. LORAZEPAM [Interacting]
     Active Substance: LORAZEPAM
     Route: 065
  31. QUETIAPINE [Suspect]
     Active Substance: QUETIAPINE
     Indication: Major depression
     Dosage: 25 TO 50 MG IMMEDIATE-RELEASE 4 TIMES DAILY AS NEEDED; AS REQUIRED
     Route: 065
  32. QUETIAPINE [Suspect]
     Active Substance: QUETIAPINE
     Dosage: EXTENDED-RELEASE AT BEDTIME
     Route: 048
  33. QUETIAPINE [Suspect]
     Active Substance: QUETIAPINE
     Route: 065
  34. ATENOLOL [Concomitant]
     Active Substance: ATENOLOL
     Indication: Hypertension
     Route: 048
  35. TIOTROPIUM [Concomitant]
     Active Substance: TIOTROPIUM
     Indication: Chronic obstructive pulmonary disease
     Route: 055
  36. TIOTROPIUM [Concomitant]
     Active Substance: TIOTROPIUM
     Route: 065
  37. ALBUTEROL [Concomitant]
     Active Substance: ALBUTEROL
     Indication: Chronic obstructive pulmonary disease
     Dosage: BID; AS REQUIRED
     Route: 055
  38. ALBUTEROL [Concomitant]
     Active Substance: ALBUTEROL
     Route: 065
  39. ESTRADIOL [Concomitant]
     Active Substance: ESTRADIOL
     Indication: Endometriosis
     Route: 048
  40. NAPROXEN [Concomitant]
     Active Substance: NAPROXEN
     Indication: Pain
     Dosage: BID; AS REQUIRED
     Route: 048
  41. NAPROXEN [Concomitant]
     Active Substance: NAPROXEN
     Route: 065
  42. FUROSEMIDE [Concomitant]
     Active Substance: FUROSEMIDE
     Indication: Oedema peripheral
     Dosage: ONCE DAILY; AS REQUIRED
     Route: 048
  43. FUROSEMIDE [Concomitant]
     Active Substance: FUROSEMIDE
     Route: 065
  44. CLONIDINE [Concomitant]
     Active Substance: CLONIDINE
     Indication: Product used for unknown indication
  45. NALOXONE [Concomitant]
     Active Substance: NALOXONE

REACTIONS (4)
  - Depressed level of consciousness [Unknown]
  - Respiratory depression [Unknown]
  - Toxicity to various agents [Unknown]
  - Drug interaction [Unknown]
